FAERS Safety Report 6312102-3 (Version None)
Quarter: 2009Q3

REPORT INFORMATION
  Report Type: 
  Country: None (occurrence: None)
  Receive Date: 20090813
  Receipt Date: 20090813
  Transmission Date: 20100115
  Serious: Yes (Other)
  Sender: FDA-Public Use
  Company Number: None

PATIENT
  Sex: Female
  Weight: 58.9676 kg

DRUGS (2)
  1. ZICAM NASAL GEL ZICAM, LLC [Suspect]
     Indication: NASOPHARYNGITIS
     Dosage: 1 DOSE EVERY 4-6 HOURS NASAL
     Route: 045
     Dates: start: 20070301, end: 20070304
  2. ZICAM NASAL GEL ZICAM, LLC [Suspect]
     Indication: NASOPHARYNGITIS
     Dosage: 1 DOSE EVERY 4-6 HOURS NASAL
     Route: 045
     Dates: start: 20080201, end: 20080203

REACTIONS (1)
  - HYPOSMIA [None]
